FAERS Safety Report 25941393 (Version 1)
Quarter: 2025Q4

REPORT INFORMATION
  Report Type: Spontaneous
  Country: CN (occurrence: CN)
  Receive Date: 20251020
  Receipt Date: 20251020
  Transmission Date: 20260118
  Serious: Yes (Other)
  Sender: ASTELLAS
  Company Number: CN-ASTELLAS-2025-AER-057765

PATIENT
  Age: 61 Year
  Sex: Female
  Weight: 35 kg

DRUGS (2)
  1. CRESEMBA [Interacting]
     Active Substance: ISAVUCONAZONIUM SULFATE
     Indication: Bronchopulmonary aspergillosis
     Dosage: CAPSULE, HARD
     Route: 048
     Dates: start: 20250617, end: 20250925
  2. HERBALS [Interacting]
     Active Substance: HERBALS
     Indication: Product used for unknown indication
     Route: 065

REACTIONS (7)
  - Urinary incontinence [Not Recovered/Not Resolved]
  - Muscular weakness [Not Recovered/Not Resolved]
  - Gait disturbance [Not Recovered/Not Resolved]
  - Blood chloride decreased [Not Recovered/Not Resolved]
  - Hyponatraemia [Not Recovered/Not Resolved]
  - Demyelination [Not Recovered/Not Resolved]
  - Drug interaction [Not Recovered/Not Resolved]

NARRATIVE: CASE EVENT DATE: 20250912
